FAERS Safety Report 17852640 (Version 2)
Quarter: 2020Q2

REPORT INFORMATION
  Report Type: Spontaneous
  Country: US (occurrence: US)
  Receive Date: 20200603
  Receipt Date: 20200605
  Transmission Date: 20200714
  Serious: No
  Sender: FDA-Public Use
  Company Number: US-BIOGEN-2020BI00871063

PATIENT
  Age: 70 Year
  Sex: Female

DRUGS (1)
  1. TYSABRI [Suspect]
     Active Substance: NATALIZUMAB
     Indication: MULTIPLE SCLEROSIS
     Route: 065
     Dates: start: 20170406

REACTIONS (10)
  - Balance disorder [Unknown]
  - Abdominal discomfort [Unknown]
  - Nausea [Unknown]
  - Arthralgia [Unknown]
  - Inappropriate schedule of product administration [Unknown]
  - Vein rupture [Unknown]
  - Poor venous access [Unknown]
  - Malaise [Unknown]
  - Myalgia [Unknown]
  - Tremor [Unknown]

NARRATIVE: CASE EVENT DATE: 2020
